FAERS Safety Report 5583359-1 (Version None)
Quarter: 2008Q1

REPORT INFORMATION
  Report Type: 
  Country: None (occurrence: None)
  Receive Date: 20080107
  Receipt Date: 20071228
  Transmission Date: 20080703
  Serious: Yes (Other)
  Sender: FDA-Public Use
  Company Number: US-PFIZER INC-2007102658

PATIENT
  Sex: Female
  Weight: 55.3 kg

DRUGS (3)
  1. CALAN [Suspect]
     Indication: HYPERTENSION
     Route: 048
  2. PREDNISONE TAB [Concomitant]
  3. ZOCOR [Concomitant]

REACTIONS (3)
  - BLOOD PRESSURE INADEQUATELY CONTROLLED [None]
  - KNEE ARTHROPLASTY [None]
  - MYOCARDIAL INFARCTION [None]
